FAERS Safety Report 7321035-5 (Version None)
Quarter: 2011Q1

REPORT INFORMATION
  Report Type: 
  Country: None (occurrence: None)
  Receive Date: 20110228
  Receipt Date: 20110217
  Transmission Date: 20110831
  Serious: Yes (Hospitalization)
  Sender: FDA-Public Use
  Company Number: US-PERRIGO-11US001364

PATIENT
  Age: 47 Year
  Sex: Female

DRUGS (3)
  1. IBUPROFEN [Suspect]
     Indication: BACK PAIN
     Dosage: UP TO 3600 MG, QD
     Route: 048
  2. CALCIUM CARBONATE FRUIT CHEWABLE 500 MG 478 [Suspect]
     Indication: DYSPEPSIA
     Dosage: UP TO 4500 MG, QD
     Route: 048
  3. MULTIVITAMINS, OTHER COMBINATIONS [Concomitant]
     Indication: WEIGHT DECREASED
     Dosage: UNK
     Route: 048

REACTIONS (14)
  - SPEECH DISORDER [None]
  - MILK-ALKALI SYNDROME [None]
  - OVERDOSE [None]
  - GASTRITIS EROSIVE [None]
  - DEHYDRATION [None]
  - ASTHENIA [None]
  - MEMORY IMPAIRMENT [None]
  - RENAL FAILURE ACUTE [None]
  - PARAESTHESIA [None]
  - BLUNTED AFFECT [None]
  - HYPERCALCAEMIA [None]
  - DIZZINESS [None]
  - SOMNOLENCE [None]
  - INCORRECT DRUG ADMINISTRATION DURATION [None]
